FAERS Safety Report 25128608 (Version 1)
Quarter: 2025Q1

REPORT INFORMATION
  Report Type: Spontaneous
  Country: BR (occurrence: BR)
  Receive Date: 20250327
  Receipt Date: 20250327
  Transmission Date: 20250408
  Serious: Yes (Other)
  Sender: ANI
  Company Number: BR-ANIPHARMA-022094

PATIENT
  Age: 20 Year
  Sex: Female
  Weight: 68 kg

DRUGS (2)
  1. FLUVOXAMINE [Suspect]
     Active Substance: FLUVOXAMINE
     Indication: Product used for unknown indication
     Route: 048
     Dates: start: 20250228
  2. RIVOTRIL [Concomitant]
     Active Substance: CLONAZEPAM
     Indication: Product used for unknown indication

REACTIONS (11)
  - Hypotension [Recovered/Resolved]
  - Tremor [Recovered/Resolved]
  - Palpitations [Recovering/Resolving]
  - Gait inability [Unknown]
  - Vertigo [Unknown]
  - Loss of consciousness [Unknown]
  - Headache [Unknown]
  - Hyperhidrosis [Recovering/Resolving]
  - Feeling abnormal [Recovering/Resolving]
  - Asthenia [Recovering/Resolving]
  - Vision blurred [Recovered/Resolved]

NARRATIVE: CASE EVENT DATE: 20250301
